FAERS Safety Report 9023708 (Version 1)
Quarter: 2013Q1

REPORT INFORMATION
  Report Type: Spontaneous
  Country: BE (occurrence: BE)
  Receive Date: 20130121
  Receipt Date: 20130121
  Transmission Date: 20140127
  Serious: No
  Sender: FDA-Public Use
  Company Number: BE-009507513-1301USA005436

PATIENT
  Age: 40 Year
  Sex: Female

DRUGS (1)
  1. SYCREST [Suspect]
     Dosage: 10 MG, BID
     Route: 060

REACTIONS (1)
  - Hypersensitivity [Recovered/Resolved]
